FAERS Safety Report 4760683-3 (Version None)
Quarter: 2005Q3

REPORT INFORMATION
  Report Type: 
  Country: None (occurrence: None)
  Receive Date: 20050826
  Receipt Date: 20050308
  Transmission Date: 20060218
  Serious: Yes (Other)
  Sender: FDA-Public Use
  Company Number: USA-2005-0019261

PATIENT
  Age: 40 Year
  Sex: Female

DRUGS (6)
  1. OXYCODONE HCL [Suspect]
  2. MORPHINE SULFATE [Suspect]
  3. CLONAZEPAM [Suspect]
  4. SONATA [Suspect]
  5. FENTANYL [Suspect]
  6. VICODIN [Suspect]

REACTIONS (1)
  - POLYSUBSTANCE ABUSE [None]
